FAERS Safety Report 15423308 (Version 1)
Quarter: 2018Q3

REPORT INFORMATION
  Report Type: Spontaneous
  Country: US (occurrence: US)
  Receive Date: 20180925
  Receipt Date: 20180925
  Transmission Date: 20181010
  Serious: Yes (Other)
  Sender: FDA-Public Use
  Company Number: US-CIPLA (EU) LIMITED-2018US21369

PATIENT

DRUGS (2)
  1. BUDESONIDE. [Suspect]
     Active Substance: BUDESONIDE
     Indication: PRODUCT USED FOR UNKNOWN INDICATION
     Dosage: UNK
     Route: 065
  2. PERFOROMIST [Concomitant]
     Active Substance: FORMOTEROL FUMARATE DIHYDRATE
     Indication: PRODUCT USED FOR UNKNOWN INDICATION
     Dosage: UNK, INHALATION SOLUTION
     Route: 065

REACTIONS (8)
  - Weight decreased [Unknown]
  - Dry skin [Unknown]
  - Skin atrophy [Unknown]
  - Dyspnoea [Unknown]
  - Pain of skin [Unknown]
  - Dry mouth [Unknown]
  - Bone pain [Unknown]
  - Body height decreased [Unknown]
